FAERS Safety Report 6494431-6 (Version None)
Quarter: 2009Q4

REPORT INFORMATION
  Report Type: 
  Country: None (occurrence: None)
  Receive Date: 20091214
  Receipt Date: 20090218
  Transmission Date: 20100525
  Serious: No
  Sender: FDA-Public Use
  Company Number: US-BRISTOL-MYERS SQUIBB COMPANY-14511281

PATIENT
  Age: 68 Year
  Sex: Male
  Weight: 83 kg

DRUGS (3)
  1. ABILIFY [Suspect]
     Indication: DEPRESSION
     Dates: start: 20080701
  2. BLOOD PRESSURE MEDICATION [Concomitant]
  3. MULTI-VITAMIN [Concomitant]

REACTIONS (4)
  - BALANCE DISORDER [None]
  - DISORIENTATION [None]
  - DIZZINESS [None]
  - VISION BLURRED [None]
